FAERS Safety Report 4472966-5 (Version None)
Quarter: 2004Q4

REPORT INFORMATION
  Report Type: 
  Country: None (occurrence: None)
  Receive Date: 20041013
  Receipt Date: 20030221
  Transmission Date: 20050328
  Serious: Yes (Hospitalization)
  Sender: FDA-Public Use
  Company Number: FR-ROCHE-332286

PATIENT
  Age: 28 Year
  Sex: Male
  Weight: 72 kg

DRUGS (3)
  1. CELLCEPT [Suspect]
     Route: 048
     Dates: start: 20021122
  2. PROGRAF [Suspect]
     Route: 048
     Dates: start: 20021127
  3. CYMEVAN [Concomitant]
     Route: 048
     Dates: start: 20021211

REACTIONS (4)
  - DEFAECATION URGENCY [None]
  - DIARRHOEA [None]
  - DRUG LEVEL INCREASED [None]
  - OESOPHAGITIS [None]
